FAERS Safety Report 6422063-4 (Version None)
Quarter: 2009Q4

REPORT INFORMATION
  Report Type: 
  Country: None (occurrence: None)
  Receive Date: 20091030
  Receipt Date: 20091028
  Transmission Date: 20100525
  Serious: Yes (Hospitalization)
  Sender: FDA-Public Use
  Company Number: US-BRISTOL-MYERS SQUIBB COMPANY-14835599

PATIENT
  Age: 64 Year
  Sex: Male
  Weight: 92 kg

DRUGS (8)
  1. ERBITUX [Suspect]
     Indication: OESOPHAGEAL CARCINOMA
     Dosage: PUT ON HOLD ON 27-OCT-2009.
     Route: 042
     Dates: start: 20091020
  2. ELOXATIN [Suspect]
     Indication: OESOPHAGEAL CARCINOMA
     Route: 042
     Dates: start: 20091020
  3. TAXOTERE [Suspect]
     Indication: OESOPHAGEAL CARCINOMA
     Route: 042
     Dates: start: 20091020
  4. ALOXI [Concomitant]
     Route: 042
     Dates: start: 20091020
  5. DEXAMETHASONE [Concomitant]
     Route: 042
     Dates: start: 20091020
  6. DIPHENHYDRAMINE [Concomitant]
     Route: 042
     Dates: start: 20091020
  7. MAGNESIUM SULFATE [Concomitant]
     Route: 042
     Dates: start: 20091020
  8. CALCIUM GLUCONATE [Concomitant]
     Route: 042
     Dates: start: 20091020

REACTIONS (3)
  - DEHYDRATION [None]
  - DIARRHOEA [None]
  - SYNCOPE [None]
